FAERS Safety Report 14726825 (Version 6)
Quarter: 2021Q1

REPORT INFORMATION
  Report Type: Other
  Country: US (occurrence: US)
  Receive Date: 20180406
  Receipt Date: 20210101
  Transmission Date: 20210419
  Serious: Yes (Other)
  Sender: FDA-Public Use
  Company Number: US-ROCHE-2098447

PATIENT
  Age: 53 Year
  Sex: Male
  Weight: 129.39 kg

DRUGS (7)
  1. VITAMIN D3 [Concomitant]
     Active Substance: CHOLECALCIFEROL
     Dosage: 5000 UNITS ;ONGOING: YES
  2. METOPROLOL SUCCINATE ER [Concomitant]
     Active Substance: METOPROLOL SUCCINATE
  3. BACLOFEN. [Concomitant]
     Active Substance: BACLOFEN
     Dosage: ONGOING:YES?MUSCLE SPAMS FROM MULTIPLE SCLEROSIS
  4. FLUOXETINE [Concomitant]
     Active Substance: FLUOXETINE HYDROCHLORIDE
     Dosage: ONGOING:YES
  5. LOSARTAN. [Concomitant]
     Active Substance: LOSARTAN
     Dosage: ONGOING:YES
  6. OCREVUS [Suspect]
     Active Substance: OCRELIZUMAB
     Indication: MULTIPLE SCLEROSIS
     Dosage: NEXT DOSES ON  20/SEP/2017, 27/SEP/2018, 29/MAR/2018, 08/APR/2019, 15/OCT/2019, 27/MAR/2019, 25/SEP/
     Route: 065
     Dates: start: 20170906
  7. RITUXAN [Suspect]
     Active Substance: RITUXIMAB
     Indication: MULTIPLE SCLEROSIS
     Route: 065

REACTIONS (14)
  - Exposure to SARS-CoV-2 [Unknown]
  - Cough [Not Recovered/Not Resolved]
  - Tooth infection [Unknown]
  - Off label use [Unknown]
  - Sinusitis [Unknown]
  - Ear infection [Unknown]
  - Bronchitis [Unknown]
  - Abscess [Recovering/Resolving]
  - Tooth fracture [Recovered/Resolved with Sequelae]
  - Influenza like illness [Recovered/Resolved]
  - Decreased immune responsiveness [Unknown]
  - Subcutaneous abscess [Recovering/Resolving]
  - Tooth abscess [Recovered/Resolved]
  - Intentional product use issue [Unknown]

NARRATIVE: CASE EVENT DATE: 202010
